FAERS Safety Report 11789018 (Version 1)
Quarter: 2015Q4

REPORT INFORMATION
  Report Type: Spontaneous
  Country: US (occurrence: None)
  Receive Date: 20151130
  Receipt Date: 20151130
  Transmission Date: 20160305
  Serious: Yes (Hospitalization, Other)
  Sender: FDA-Public Use
  Company Number: None

PATIENT
  Age: 28 Year
  Sex: Female
  Weight: 57.15 kg

DRUGS (1)
  1. DEPO-PROVERA [Suspect]
     Active Substance: MEDROXYPROGESTERONE ACETATE
     Dosage: EVERY 3 MONTHS
     Route: 030

REACTIONS (16)
  - Peripheral coldness [None]
  - Hypoaesthesia [None]
  - Back pain [None]
  - Chest pain [None]
  - Suicidal ideation [None]
  - Wrist fracture [None]
  - Intervertebral disc disorder [None]
  - Dizziness [None]
  - Loss of consciousness [None]
  - Depression [None]
  - Neck pain [None]
  - Flushing [None]
  - Blood pressure abnormal [None]
  - VIIth nerve paralysis [None]
  - Cerebrovascular accident [None]
  - Tooth fracture [None]

NARRATIVE: CASE EVENT DATE: 20150920
